FAERS Safety Report 13511335 (Version 1)
Quarter: 2017Q2

REPORT INFORMATION
  Report Type: Spontaneous
  Country: US (occurrence: US)
  Receive Date: 20170504
  Receipt Date: 20170504
  Transmission Date: 20170830
  Serious: Yes (Other)
  Sender: FDA-Public Use
  Company Number: US-EMERGENT BIOSOLUTIONS-16BA00118SP

PATIENT
  Age: 55 Year
  Sex: Male
  Weight: 99.6 kg

DRUGS (23)
  1. HEPARIN [Concomitant]
     Active Substance: HEPARIN SODIUM
     Dosage: 1000 UNIT, UNK
     Dates: start: 20160804, end: 20160823
  2. ARTIFICIAL TEARS [Concomitant]
     Active Substance: GLYCERIN\HYPROMELLOSES\POLYETHYLENE GLYCOL 400
     Dosage: UNK, Q6H
     Dates: start: 20160804, end: 20160823
  3. BAT [Suspect]
     Active Substance: EQUINE BOTULINUM NEUROTOXIN A/B/C/D/E/F/G IMMUNE FAB2
     Dosage: 175 ML, SINGLE
     Route: 042
     Dates: start: 20160801, end: 20160801
  4. FENTANYL. [Concomitant]
     Active Substance: FENTANYL
     Indication: SEDATION
  5. DULCOLAX NOS [Concomitant]
     Active Substance: BISACODYL OR DOCUSATE SODIUM
     Dosage: 10 MG, PRN
     Dates: start: 20160802, end: 20160823
  6. MIRALAX [Concomitant]
     Active Substance: POLYETHYLENE GLYCOL 3350
     Dosage: 17 G, QD
     Dates: start: 20160802, end: 20160806
  7. HEPARIN [Concomitant]
     Active Substance: HEPARIN SODIUM
     Dosage: 5000 UNIT, BID
     Dates: start: 20160803, end: 20160809
  8. GAMUNEX-C [Concomitant]
     Active Substance: HUMAN IMMUNOGLOBULIN G
     Dosage: 40 G, QD
     Dates: start: 20160801, end: 20160802
  9. GLUCAGEN [Concomitant]
     Active Substance: GLUCAGON HYDROCHLORIDE
     Dosage: 1 MG, PRN
     Dates: start: 20160805, end: 20160823
  10. CALCIUM GLUCONATE. [Concomitant]
     Active Substance: CALCIUM GLUCONATE
     Dosage: UNK, TID
     Dates: start: 20160805, end: 20160819
  11. IMMUNOGLOBULINS NOS [Concomitant]
     Active Substance: IMMUNE GLOBULIN NOS
     Dosage: 40 G, SINGLE
     Route: 042
     Dates: start: 20160731, end: 20160802
  12. NEO-SYNEPHRINE [Concomitant]
     Active Substance: PHENYLEPHRINE HYDROCHLORIDE
     Dosage: 0.4 MG, SINGLE
     Dates: start: 20160805, end: 20160805
  13. THIAMINE HYDROCHLORIDE. [Concomitant]
     Active Substance: THIAMINE HYDROCHLORIDE
     Dosage: 100 MG, QD
     Dates: start: 20160805, end: 20160808
  14. PRILOSEC [Concomitant]
     Active Substance: OMEPRAZOLE MAGNESIUM
     Dosage: 20 MG, UNK
     Dates: start: 20160803, end: 20160823
  15. LEVOPHED [Concomitant]
     Active Substance: NOREPINEPHRINE BITARTRATE
     Dosage: UNK
     Dates: start: 20160805, end: 20160808
  16. HUMULIN R [Concomitant]
     Active Substance: INSULIN HUMAN
     Dosage: UNK, Q6H
     Dates: start: 20160804, end: 20160823
  17. DIPRIVAN [Concomitant]
     Active Substance: PROPOFOL
     Dosage: 10 MG/ML, UNK
     Dates: start: 20160801, end: 20160803
  18. SENOKOT-S [Concomitant]
     Active Substance: DOCUSATE SODIUM\SENNOSIDES
     Dosage: UNK, BID
     Dates: start: 20160802, end: 20160806
  19. NOREPINEPHRINE. [Concomitant]
     Active Substance: NOREPINEPHRINE
     Indication: HYPOTENSION
     Dosage: UNK
     Dates: start: 20160731
  20. DIPRIVAN [Concomitant]
     Active Substance: PROPOFOL
     Dosage: 10 UNK, UNK
     Dates: start: 20160803, end: 20160804
  21. ATROPINE SULATE [Concomitant]
     Active Substance: ATROPINE SULFATE
     Dosage: 1 MG, SINGLE
     Dates: start: 20160805, end: 20160806
  22. FENTANYL. [Concomitant]
     Active Substance: FENTANYL
     Indication: PAIN
     Dosage: 12.5 MCG/HR, UNK
     Route: 042
     Dates: start: 20160731, end: 20160813
  23. VANOCIN [Concomitant]
     Indication: DIALYSIS
     Dosage: UNK, SINGLE
     Dates: start: 20160801, end: 20160801

REACTIONS (4)
  - Anaemia [Recovered/Resolved]
  - Clostridium difficile colitis [Recovered/Resolved]
  - Liver function test increased [Recovered/Resolved]
  - Pneumonia [Recovered/Resolved]

NARRATIVE: CASE EVENT DATE: 20160805
